FAERS Safety Report 5071552-6 (Version None)
Quarter: 2006Q3

REPORT INFORMATION
  Report Type: 
  Country: None (occurrence: None)
  Receive Date: 20060804
  Receipt Date: 20060504
  Transmission Date: 20061208
  Serious: Yes (Hospitalization)
  Sender: FDA-Public Use
  Company Number: US-ROCHE-446886

PATIENT
  Age: 50 Year
  Sex: Male
  Weight: 109.8 kg

DRUGS (15)
  1. PEGASYS [Suspect]
     Indication: HEPATITIS C
     Route: 058
     Dates: start: 19950615
  2. PEGASYS [Suspect]
     Route: 058
     Dates: start: 20000615
  3. PEGASYS [Suspect]
     Route: 058
     Dates: start: 20030215, end: 20050815
  4. COPEGUS [Suspect]
     Indication: HEPATITIS C
     Route: 048
     Dates: start: 19950615
  5. COPEGUS [Suspect]
     Route: 048
     Dates: start: 20000615
  6. COPEGUS [Suspect]
     Route: 048
     Dates: start: 20030215, end: 20050815
  7. DURAGESIC-100 [Concomitant]
  8. LORTAB [Concomitant]
     Dosage: REPORTED AS LORTAB 10/650.
  9. LISINOPRIL [Concomitant]
     Indication: HYPERTENSION
  10. SULAR [Concomitant]
     Indication: HYPERTENSION
     Dosage: REPORTED AS 20 AND 40 MG EVERY MORNING.
  11. NITROQUICK [Concomitant]
  12. ALBUTEROL SPIROS [Concomitant]
     Indication: ASTHMA
  13. COMBIVENT [Concomitant]
     Indication: ASTHMA
  14. EFFEXOR [Concomitant]
  15. PROVIGIL [Concomitant]
     Dosage: 200 MG EVERY MORNING AND 400 MG EVERY EVENING.

REACTIONS (3)
  - DEHYDRATION [None]
  - EMOTIONAL DISORDER [None]
  - WEIGHT DECREASED [None]
